FAERS Safety Report 9178766 (Version 1)
Quarter: 2013Q1

REPORT INFORMATION
  Report Type: Other
  Country: GB (occurrence: GB)
  Receive Date: 20130321
  Receipt Date: 20130321
  Transmission Date: 20140127
  Serious: Yes (Hospitalization)
  Sender: FDA-Public Use
  Company Number: GB-BRISTOL-MYERS SQUIBB COMPANY-17471855

PATIENT
  Age: 77 Year
  Sex: Male

DRUGS (3)
  1. WARFARIN SODIUM [Suspect]
  2. DEXAMETHASONE [Interacting]
     Indication: PLASMA CELL MYELOMA
     Dosage: DAYS 1-4, 9-12, 17-20
  3. LENALIDOMIDE [Suspect]
     Indication: PLASMA CELL MYELOMA
     Dosage: DAYS 1-21
     Dates: start: 201011, end: 201102

REACTIONS (3)
  - Drug interaction [Unknown]
  - Anticoagulation drug level below therapeutic [Unknown]
  - Acute myocardial infarction [Unknown]
